FAERS Safety Report 8894223 (Version 1)
Quarter: 2012Q4

REPORT INFORMATION
  Report Type: 
  Country: US (occurrence: US)
  Receive Date: 20121107
  Receipt Date: 20121107
  Transmission Date: 20130627
  Serious: No
  Sender: FDA-Public Use
  Company Number: US-AMGEN-USASP2011054641

PATIENT
  Age: 45 Year
  Sex: Female

DRUGS (1)
  1. ENBREL [Suspect]
     Indication: PSORIASIS
     Dosage: 50 mg, 2 times/wk
     Dates: start: 20110912, end: 20111011

REACTIONS (8)
  - Skin ulcer [Not Recovered/Not Resolved]
  - Hyperhidrosis [Not Recovered/Not Resolved]
  - Faeces discoloured [Recovered/Resolved]
  - Subcutaneous abscess [Not Recovered/Not Resolved]
  - Diarrhoea [Recovered/Resolved]
  - Injection site haematoma [Recovered/Resolved]
  - Tonsillitis [Unknown]
  - Infection [Unknown]
